FAERS Safety Report 8264319-9 (Version None)
Quarter: 2012Q2

REPORT INFORMATION
  Report Type: 
  Country: None (occurrence: None)
  Receive Date: 20120406
  Receipt Date: 20120330
  Transmission Date: 20120825
  Serious: No
  Sender: FDA-Public Use
  Company Number: US-PFIZER INC-2012047824

PATIENT
  Sex: Female

DRUGS (5)
  1. FLEXERIL [Concomitant]
     Dosage: UNK
  2. NEURONTIN [Suspect]
     Dosage: 400 MG, 2 PO QHS
     Route: 048
  3. SINGULAIR [Concomitant]
     Dosage: UNK
  4. LISINOPRIL [Concomitant]
     Dosage: UNK
  5. CYMBALTA [Concomitant]
     Dosage: UNK

REACTIONS (1)
  - PAIN IN EXTREMITY [None]
